FAERS Safety Report 5114462-8 (Version None)
Quarter: 2006Q3

REPORT INFORMATION
  Report Type: 
  Country: None (occurrence: None)
  Receive Date: 20060802
  Receipt Date: 20060516
  Transmission Date: 20061208
  Serious: No
  Sender: FDA-Public Use
  Company Number: 200612339US

PATIENT
  Age: 33 Year
  Sex: Female
  Weight: 54.54 kg

DRUGS (4)
  1. KETEK [Suspect]
     Indication: UPPER RESPIRATORY TRACT INFECTION
     Dosage: 1000 /DAY MD PO
     Route: 048
     Dates: start: 20060307
  2. DESLORATADINE [Concomitant]
  3. ALBUTEROL [Concomitant]
  4. FERROUS SULFATE TAB [Concomitant]

REACTIONS (5)
  - DIARRHOEA [None]
  - DIPLOPIA [None]
  - DIZZINESS [None]
  - MOTOR DYSFUNCTION [None]
  - VISION BLURRED [None]
